FAERS Safety Report 6664117-3 (Version None)
Quarter: 2010Q2

REPORT INFORMATION
  Report Type: 
  Country: None (occurrence: None)
  Receive Date: 20100401
  Receipt Date: 20100325
  Transmission Date: 20101027
  Serious: Yes (Hospitalization)
  Sender: FDA-Public Use
  Company Number: B0634259A

PATIENT
  Sex: Female

DRUGS (5)
  1. KIVEXA [Suspect]
     Indication: HIV INFECTION
     Route: 048
     Dates: start: 20100114, end: 20100123
  2. DEROXAT [Suspect]
     Indication: DRUG USE FOR UNKNOWN INDICATION
     Route: 065
     Dates: start: 20100107, end: 20100118
  3. BACTRIM [Suspect]
     Route: 048
     Dates: start: 20091222, end: 20100123
  4. REYATAZ [Suspect]
     Indication: HIV INFECTION
     Route: 048
     Dates: start: 20100114, end: 20100123
  5. NORVIR [Suspect]
     Indication: HIV INFECTION
     Dosage: 100MG PER DAY
     Route: 048
     Dates: start: 20100114, end: 20100123

REACTIONS (15)
  - ABDOMINAL PAIN [None]
  - CHOLESTASIS [None]
  - DERMATITIS EXFOLIATIVE [None]
  - DIARRHOEA [None]
  - DRUG RASH WITH EOSINOPHILIA AND SYSTEMIC SYMPTOMS [None]
  - GENERAL PHYSICAL HEALTH DETERIORATION [None]
  - GENERAL SYMPTOM [None]
  - HEPATOCELLULAR INJURY [None]
  - HEPATOSPLENOMEGALY [None]
  - HERPES VIRUS INFECTION [None]
  - LYMPHADENOPATHY [None]
  - MONONUCLEOSIS SYNDROME [None]
  - OEDEMA MUCOSAL [None]
  - PRURIGO [None]
  - PYREXIA [None]
